FAERS Safety Report 23913935 (Version 26)
Quarter: 2025Q2

REPORT INFORMATION
  Report Type: Report from Study
  Country: CO (occurrence: CO)
  Receive Date: 20240529
  Receipt Date: 20250521
  Transmission Date: 20250716
  Serious: Yes (Other)
  Sender: TAKEDA
  Company Number: CO-TAKEDA-2024TUS052508

PATIENT
  Age: 37 Year
  Sex: Female
  Weight: 69 kg

DRUGS (5)
  1. VEDOLIZUMAB [Suspect]
     Active Substance: VEDOLIZUMAB
     Indication: Crohn^s disease
  2. VEDOLIZUMAB [Suspect]
     Active Substance: VEDOLIZUMAB
     Dosage: 300 MILLIGRAM, Q4WEEKS
  3. VEDOLIZUMAB [Suspect]
     Active Substance: VEDOLIZUMAB
     Dosage: 300 MILLIGRAM, Q4WEEKS
  4. VEDOLIZUMAB [Suspect]
     Active Substance: VEDOLIZUMAB
  5. ACETAMINOPHEN [Concomitant]
     Active Substance: ACETAMINOPHEN
     Indication: Premedication

REACTIONS (22)
  - Crohn^s disease [Unknown]
  - Gastroenteritis salmonella [Unknown]
  - Haematochezia [Unknown]
  - Dizziness [Recovered/Resolved]
  - Headache [Not Recovered/Not Resolved]
  - Dyspnoea [Unknown]
  - Chest pain [Unknown]
  - Weight increased [Unknown]
  - Vaginal haemorrhage [Unknown]
  - Diarrhoea [Unknown]
  - Pain [Unknown]
  - Discouragement [Unknown]
  - Large intestine polyp [Unknown]
  - Anaesthetic complication [Unknown]
  - Procedural pain [Unknown]
  - Influenza like illness [Unknown]
  - Drug ineffective [Unknown]
  - Weight decreased [Unknown]
  - Abdominal pain [Unknown]
  - Fatigue [Unknown]
  - Influenza [Recovered/Resolved]
  - Pyrexia [Unknown]

NARRATIVE: CASE EVENT DATE: 20240625
